FAERS Safety Report 23749535 (Version 2)
Quarter: 2024Q2

REPORT INFORMATION
  Report Type: Report from Study
  Country: US (occurrence: US)
  Receive Date: 20240416
  Receipt Date: 20240531
  Transmission Date: 20240716
  Serious: No
  Sender: FDA-Public Use
  Company Number: US-ALXN-202404USA000649US

PATIENT

DRUGS (1)
  1. STRENSIQ [Suspect]
     Active Substance: ASFOTASE ALFA
     Indication: Product used for unknown indication
     Dosage: UNK
     Route: 065

REACTIONS (8)
  - Vitamin B6 decreased [Unknown]
  - Asthenia [Unknown]
  - Insomnia [Unknown]
  - Menopause [Unknown]
  - Hot flush [Unknown]
  - Temperature intolerance [Unknown]
  - Headache [Not Recovered/Not Resolved]
  - Muscular weakness [Unknown]
